FAERS Safety Report 24132466 (Version 1)
Quarter: 2024Q3

REPORT INFORMATION
  Report Type: Spontaneous
  Country: US (occurrence: US)
  Receive Date: 20240724
  Receipt Date: 20240724
  Transmission Date: 20241017
  Serious: Yes (Death, Other)
  Sender: NOVARTIS
  Company Number: US-002147023-NVSC2024US151020

PATIENT
  Sex: Male

DRUGS (1)
  1. PLUVICTO [Suspect]
     Active Substance: LUTETIUM LU-177 VIPIVOTIDE TETRAXETAN
     Indication: Hormone-refractory prostate cancer
     Dosage: 200 MCI EVERY 6 WEEKS
     Route: 042

REACTIONS (2)
  - Myelosuppression [Fatal]
  - Haemorrhage [Fatal]
